FAERS Safety Report 14908958 (Version 1)
Quarter: 2018Q2

REPORT INFORMATION
  Report Type: Spontaneous
  Country: US (occurrence: PK)
  Receive Date: 20180517
  Receipt Date: 20180517
  Transmission Date: 20180711
  Serious: Yes (Death)
  Sender: FDA-Public Use
  Company Number: PK-JACOBUS PHARMACEUTICAL COMPANY, INC.-2047997

PATIENT
  Age: 31 Year
  Sex: Male

DRUGS (2)
  1. PYRIDOXINE HYDROCHLORIDE. [Concomitant]
     Active Substance: PYRIDOXINE HYDROCHLORIDE
  2. PASER [Suspect]
     Active Substance: AMINOSALICYLIC ACID

REACTIONS (2)
  - Gastroenteritis [Fatal]
  - Anaemia [Fatal]
